FAERS Safety Report 4526609-2 (Version None)
Quarter: 2004Q4

REPORT INFORMATION
  Report Type: 
  Country: None (occurrence: None)
  Receive Date: 20041213
  Receipt Date: 20041123
  Transmission Date: 20050328
  Serious: Yes (Life-Threatening, Hospitalization)
  Sender: FDA-Public Use
  Company Number: WAES 0403NLD00027

PATIENT
  Age: 43 Year
  Sex: Male

DRUGS (5)
  1. ZOCOR [Suspect]
     Indication: HIGH DENSITY LIPOPROTEIN DECREASED
     Dosage: 40 MG/DAILY
     Route: 048
     Dates: start: 20010912
  2. CARBASPIRIN CALCIUM [Concomitant]
  3. CLOPIDOGREL BISULFATE [Concomitant]
  4. METOPROLOL TARTRATE [Concomitant]
  5. PERINDOPRIL [Concomitant]

REACTIONS (3)
  - CATHETER SITE HAEMORRHAGE [None]
  - CORONARY ARTERY INSUFFICIENCY [None]
  - POST PROCEDURAL HAEMORRHAGE [None]
